FAERS Safety Report 18422074 (Version 1)
Quarter: 2020Q4

REPORT INFORMATION
  Report Type: Spontaneous
  Country: FR (occurrence: FR)
  Receive Date: 20201023
  Receipt Date: 20201023
  Transmission Date: 20210114
  Serious: Yes (Hospitalization)
  Sender: FDA-Public Use
  Company Number: NVSC2020FR279741

PATIENT
  Age: 37 Year
  Sex: Male
  Weight: 65 kg

DRUGS (4)
  1. RISPERIDONE. [Suspect]
     Active Substance: RISPERIDONE
     Indication: WRONG PATIENT RECEIVED PRODUCT
     Dosage: 4 MG, TOTAL
     Route: 048
     Dates: start: 20200828, end: 20200828
  2. SERESTA [Suspect]
     Active Substance: OXAZEPAM
     Indication: WRONG PATIENT RECEIVED PRODUCT
     Dosage: 50 MG, TOTAL
     Route: 048
     Dates: start: 20200828, end: 20200828
  3. QUETIAPINE. [Suspect]
     Active Substance: QUETIAPINE
     Indication: WRONG PATIENT RECEIVED PRODUCT
     Dosage: 800 MG, TOTAL
     Route: 048
     Dates: start: 20200828, end: 20200828
  4. LOXAPAC [Suspect]
     Active Substance: LOXAPINE
     Indication: WRONG PATIENT RECEIVED PRODUCT
     Dosage: 50 MG, QD
     Route: 048
     Dates: start: 20200828, end: 20200828

REACTIONS (4)
  - Wrong patient received product [Recovered/Resolved]
  - Sinus tachycardia [Recovered/Resolved]
  - Psychomotor skills impaired [Recovered/Resolved]
  - Product administration error [Recovered/Resolved]

NARRATIVE: CASE EVENT DATE: 20200828
